FAERS Safety Report 7227879-2 (Version None)
Quarter: 2011Q1

REPORT INFORMATION
  Report Type: 
  Country: None (occurrence: None)
  Receive Date: 20110114
  Receipt Date: 20110110
  Transmission Date: 20110831
  Serious: Yes (Other)
  Sender: FDA-Public Use
  Company Number: GB-MERCK-1101GBR00028

PATIENT
  Sex: Female

DRUGS (6)
  1. CANDESARTAN [Concomitant]
     Route: 065
  2. LERCANIDIPINE [Concomitant]
     Route: 065
  3. ASPIRIN [Concomitant]
     Route: 065
  4. ZOCOR [Suspect]
     Indication: HYPERCHOLESTEROLAEMIA
     Route: 065
     Dates: start: 20000101, end: 20100101
  5. BENDROFLUMETHIAZIDE [Concomitant]
     Route: 065
  6. EZETIMIBE [Concomitant]
     Route: 048

REACTIONS (6)
  - MYALGIA [None]
  - C-REACTIVE PROTEIN INCREASED [None]
  - ARTHRALGIA [None]
  - RED BLOOD CELL SEDIMENTATION RATE INCREASED [None]
  - PAIN IN EXTREMITY [None]
  - MUSCULOSKELETAL PAIN [None]
